FAERS Safety Report 23718743 (Version 1)
Quarter: 2024Q2

REPORT INFORMATION
  Report Type: Report from Study
  Country: US (occurrence: US)
  Receive Date: 20240408
  Receipt Date: 20240408
  Transmission Date: 20240716
  Serious: Yes (Other)
  Sender: FDA-Public Use
  Company Number: US-ALNYLAM PHARMACEUTICALS, INC.-ALN-2024-001846

PATIENT

DRUGS (1)
  1. AMVUTTRA [Suspect]
     Active Substance: VUTRISIRAN
     Indication: Hereditary neuropathic amyloidosis
     Dosage: UNK
     Route: 065
     Dates: start: 20230111, end: 20230111

REACTIONS (7)
  - Limb operation [Unknown]
  - Shoulder operation [Unknown]
  - Knee arthroplasty [Unknown]
  - Limb injury [Unknown]
  - Liver disorder [Unknown]
  - Visual impairment [Unknown]
  - Vitreous floaters [Unknown]
